FAERS Safety Report 10370381 (Version 1)
Quarter: 2014Q1

REPORT INFORMATION
  Report Type: Spontaneous
  Country: US (occurrence: None)
  Receive Date: 20140306
  Receipt Date: 20140306
  Transmission Date: 20141002
  Serious: Yes (Life-Threatening, Hospitalization, Other)
  Sender: FDA-Public Use
  Company Number: 163-21880-13071860

PATIENT
  Age: 78 Year
  Sex: Male

DRUGS (10)
  1. REVLIMID [Suspect]
     Indication: PLASMA CELL MYELOMA
     Dosage: 25 MG, 21 IN 21 D, PO
     Route: 048
     Dates: start: 20130425
  2. BENAZEPRIL HCL [Concomitant]
  3. BUSPIRONE HCL [Concomitant]
  4. DEXAMETHASONE (DEXAMETHASONE) (UNKNOWN) [Concomitant]
  5. FOLIC ACID [Concomitant]
  6. IRON [Concomitant]
  7. MINOCYCLINE HCL [Concomitant]
  8. NEXIUM [Concomitant]
  9. SIMVASTATIN (SIMVASTATIN) (UNKNOWN) [Concomitant]
  10. BETHANECHOL CHLORIDE [Concomitant]

REACTIONS (3)
  - Pulmonary embolism [None]
  - Dyspnoea [None]
  - Deep vein thrombosis [None]
